FAERS Safety Report 9496628 (Version 3)
Quarter: 2013Q4

REPORT INFORMATION
  Report Type: Spontaneous
  Country: JP (occurrence: None)
  Receive Date: 20130828
  Receipt Date: 20131021
  Transmission Date: 20140711
  Serious: Yes (Hospitalization)
  Sender: FDA-Public Use
  Company Number: AE-SPE-2013-025

PATIENT
  Age: 58 Year
  Sex: Male

DRUGS (2)
  1. MEIACT MS [Suspect]
     Indication: PNEUMONIA
     Route: 048
     Dates: start: 20130817, end: 20130819
  2. ROCEPHIN [Suspect]
     Indication: PNEUMONIA
     Route: 042
     Dates: start: 20130812, end: 20130817

REACTIONS (1)
  - Agranulocytosis [None]
